FAERS Safety Report 17998491 (Version 1)
Quarter: 2020Q3

REPORT INFORMATION
  Report Type: Spontaneous
  Country: US (occurrence: US)
  Receive Date: 20200709
  Receipt Date: 20200709
  Transmission Date: 20201103
  Serious: Yes (Other)
  Sender: FDA-Public Use
  Company Number: US-TEVA-2020-US-1798579

PATIENT
  Age: 26 Year
  Sex: Female

DRUGS (1)
  1. CLONIDINE ACTAVIS [Suspect]
     Active Substance: CLONIDINE
     Route: 065

REACTIONS (7)
  - Hypotension [Unknown]
  - Heart rate decreased [Unknown]
  - Loss of consciousness [Unknown]
  - Unresponsive to stimuli [Unknown]
  - Lethargy [Unknown]
  - Peripheral coldness [Unknown]
  - Paroxysmal autonomic instability with dystonia [Unknown]
